FAERS Safety Report 15694041 (Version 4)
Quarter: 2018Q4

REPORT INFORMATION
  Report Type: Report from Study
  Country: FR (occurrence: FR)
  Receive Date: 20181206
  Receipt Date: 20181218
  Transmission Date: 20190205
  Serious: Yes (Hospitalization, Other)
  Sender: FDA-Public Use
  Company Number: FR-EISAI MEDICAL RESEARCH-EC-2018-048619

PATIENT
  Age: 55 Year
  Sex: Male
  Weight: 82 kg

DRUGS (6)
  1. LENVATINIB [Suspect]
     Active Substance: LENVATINIB
     Indication: HEPATOCELLULAR CARCINOMA
     Route: 048
     Dates: start: 20181115, end: 20181121
  2. LENVATINIB [Suspect]
     Active Substance: LENVATINIB
     Route: 048
     Dates: start: 20181122, end: 20181129
  3. PEMBROLIZUMAB. [Suspect]
     Active Substance: PEMBROLIZUMAB
     Indication: HEPATOCELLULAR CARCINOMA
     Route: 041
     Dates: start: 20181115, end: 20181206
  4. LANTUS [Concomitant]
     Active Substance: INSULIN GLARGINE
  5. DUPHALAC [Concomitant]
     Active Substance: LACTULOSE
  6. NOVORAPID [Concomitant]
     Active Substance: INSULIN ASPART

REACTIONS (2)
  - Pyrexia [Recovered/Resolved]
  - Hepatic encephalopathy [Recovered/Resolved]

NARRATIVE: CASE EVENT DATE: 20181129
